FAERS Safety Report 17884095 (Version 1)
Quarter: 2020Q2

REPORT INFORMATION
  Report Type: Spontaneous
  Country: SE (occurrence: SE)
  Receive Date: 20200611
  Receipt Date: 20200611
  Transmission Date: 20200714
  Serious: Yes (Other)
  Sender: FDA-Public Use
  Company Number: SE-ACCORD-185111

PATIENT
  Age: 5 Year
  Sex: Male
  Weight: 21 kg

DRUGS (4)
  1. IKTORIVIL [Concomitant]
     Active Substance: CLONAZEPAM
     Dates: start: 2014
  2. PYRIDOXINE [Concomitant]
     Active Substance: PYRIDOXINE
     Dates: start: 202003
  3. LEVETIRACETAM. [Suspect]
     Active Substance: LEVETIRACETAM
     Indication: EPILEPSY
     Dates: start: 20191204
  4. TRILEPTAL [Concomitant]
     Active Substance: OXCARBAZEPINE
     Dates: start: 2014

REACTIONS (3)
  - Aggression [Not Recovered/Not Resolved]
  - Movement disorder [Not Recovered/Not Resolved]
  - Dysphemia [Not Recovered/Not Resolved]

NARRATIVE: CASE EVENT DATE: 201912
